FAERS Safety Report 25847766 (Version 1)
Quarter: 2025Q3

REPORT INFORMATION
  Report Type: Spontaneous
  Country: EU (occurrence: EU)
  Receive Date: 20250925
  Receipt Date: 20250925
  Transmission Date: 20251020
  Serious: Yes (Hospitalization)
  Sender: NOVO NORDISK
  Company Number: None

PATIENT
  Age: 38 Year
  Sex: Female

DRUGS (1)
  1. WEGOVY [Suspect]
     Active Substance: SEMAGLUTIDE
     Indication: Overweight
     Dosage: 1.7 MG, QW
     Route: 058
     Dates: start: 202502

REACTIONS (4)
  - Atypical migraine [Recovered/Resolved]
  - Aphasia [Unknown]
  - Visual impairment [Unknown]
  - Migraine with aura [Recovered/Resolved]

NARRATIVE: CASE EVENT DATE: 20250601
